FAERS Safety Report 9693242 (Version 1)
Quarter: 2013Q4

REPORT INFORMATION
  Report Type: Spontaneous
  Country: LB (occurrence: LB)
  Receive Date: 20131118
  Receipt Date: 20131118
  Transmission Date: 20140711
  Serious: Yes (Death, Hospitalization)
  Sender: FDA-Public Use
  Company Number: LB-ABBVIE-13P-093-1170268-00

PATIENT
  Age: 74 Year
  Sex: Female
  Weight: 120 kg

DRUGS (1)
  1. HUMIRA [Suspect]
     Indication: PSORIASIS
     Route: 058
     Dates: end: 20130912

REACTIONS (1)
  - Lung disorder [Fatal]
